FAERS Safety Report 13346694 (Version 1)
Quarter: 2017Q1

REPORT INFORMATION
  Report Type: Spontaneous
  Country: US (occurrence: US)
  Receive Date: 20170317
  Receipt Date: 20170317
  Transmission Date: 20170428
  Serious: Yes (Other)
  Sender: FDA-Public Use
  Company Number: US-MYLANLABS-2017M1016799

PATIENT

DRUGS (7)
  1. FENTANYL. [Suspect]
     Active Substance: FENTANYL
     Indication: ANAESTHESIA
     Dosage: 100MCG
     Route: 050
  2. OMNIPAQUE [Suspect]
     Active Substance: IOHEXOL
     Indication: PRODUCT USED FOR UNKNOWN INDICATION
     Dosage: 13ML
     Route: 065
  3. BUPIVACAINE. [Suspect]
     Active Substance: BUPIVACAINE
     Dosage: 0.0625% BUPIVACAINE WITH 2MCG/ML FENTANYL AT 14 ML/HR
     Route: 050
  4. FENTANYL. [Suspect]
     Active Substance: FENTANYL
     Dosage: 2MCG/ML FENTANYL WITH BUPIVACAINE AT 14 ML/HR
     Route: 050
  5. PHENYLEPHRINE [Suspect]
     Active Substance: PHENYLEPHRINE\PHENYLEPHRINE HYDROCHLORIDE
     Indication: PRODUCT USED FOR UNKNOWN INDICATION
     Dosage: 100MCG
     Route: 065
  6. ADRENALINE W/LIDOCAINE [Suspect]
     Active Substance: EPINEPHRINE\LIDOCAINE
     Indication: ANAESTHESIA
     Dosage: 1.5% LIDOCAINE AND 1:200000 EPINEPHRINE, 3ML
     Route: 008
  7. BUPIVACAINE. [Suspect]
     Active Substance: BUPIVACAINE
     Indication: ANAESTHESIA
     Dosage: 0.25% BUPIVACAINE IN TWO, 4ML INJECTIONS
     Route: 050

REACTIONS (2)
  - Horner^s syndrome [Unknown]
  - Maternal exposure during delivery [Unknown]
